FAERS Safety Report 5833141-2 (Version None)
Quarter: 2008Q3

REPORT INFORMATION
  Report Type: 
  Country: None (occurrence: None)
  Receive Date: 20080731
  Receipt Date: 20080718
  Transmission Date: 20090109
  Serious: Yes (Death)
  Sender: FDA-Public Use
  Company Number: 2008AL0088719

PATIENT
  Age: 72 Year
  Sex: Male
  Weight: 49.8957 kg

DRUGS (1)
  1. DIGOXIN [Suspect]
     Indication: CARDIAC DISORDER
     Dates: start: 20060101

REACTIONS (1)
  - MALAISE [None]
